FAERS Safety Report 23586247 (Version 1)
Quarter: 2024Q1

REPORT INFORMATION
  Report Type: Spontaneous
  Country: US (occurrence: US)
  Receive Date: 20240301
  Receipt Date: 20240301
  Transmission Date: 20240409
  Serious: No
  Sender: FDA-Public Use
  Company Number: US-Kindeva Drug Delivery L.P.-2153918

PATIENT
  Age: 47 Year
  Sex: Male

DRUGS (1)
  1. ALBUTEROL SULFATE [Suspect]
     Active Substance: ALBUTEROL SULFATE
     Route: 055

REACTIONS (3)
  - Incorrect dose administered [Unknown]
  - Drug delivery system malfunction [Unknown]
  - Choking [Unknown]

NARRATIVE: CASE EVENT DATE: 20240131
